FAERS Safety Report 4696614-4 (Version None)
Quarter: 2005Q2

REPORT INFORMATION
  Report Type: 
  Country: None (occurrence: None)
  Receive Date: 20050620
  Receipt Date: 20050113
  Transmission Date: 20051028
  Serious: Yes (Other)
  Sender: FDA-Public Use
  Company Number: 200510211US

PATIENT
  Age: 75 Year
  Sex: Female
  Weight: 60.5 kg

DRUGS (8)
  1. LANTUS [Suspect]
     Indication: DIABETES MELLITUS NON-INSULIN-DEPENDENT
     Dosage: 33 U QAM
     Dates: start: 20041124
  2. LANTUS [Suspect]
     Indication: DIABETES MELLITUS NON-INSULIN-DEPENDENT
     Dosage: 30 U QAM
     Dates: start: 20050114
  3. VITAMIN D [Concomitant]
  4. CALCIUM GLUCONATE [Concomitant]
  5. GLIPIZIDE [Concomitant]
  6. LASIX [Concomitant]
  7. POTASSIUM CHLORIDE (K-LOR) [Concomitant]
  8. THYROID (ARMOUR THYROID) [Concomitant]

REACTIONS (7)
  - ASTHENIA [None]
  - BLOOD GLUCOSE DECREASED [None]
  - DIZZINESS [None]
  - FALL [None]
  - HEADACHE [None]
  - HOT FLUSH [None]
  - TREMOR [None]
